FAERS Safety Report 16714803 (Version 1)
Quarter: 2019Q3

REPORT INFORMATION
  Report Type: Not Available
  Country: CZ (occurrence: CZ)
  Receive Date: 20190819
  Receipt Date: 20190819
  Transmission Date: 20191004
  Serious: Yes (Hospitalization, Other)
  Sender: FDA-Public Use
  Company Number: CZ-SYNTHON BV-IN51PV19_49457

PATIENT
  Age: 58 Year
  Sex: Male

DRUGS (11)
  1. TAMSULOSIN OMNIC TOCAS [Suspect]
     Active Substance: TAMSULOSIN
     Indication: BENIGN PROSTATIC HYPERPLASIA
     Dosage: UNK
     Dates: start: 2016
  2. FEBUXOSTAT. [Concomitant]
     Active Substance: FEBUXOSTAT
  3. OMEPRAZOLE. [Concomitant]
     Active Substance: OMEPRAZOLE
  4. FUROSEMIDE. [Concomitant]
     Active Substance: FUROSEMIDE
  5. RILMENIDINE [Concomitant]
     Active Substance: RILMENIDINE
  6. LERCANIDIPINE [Concomitant]
     Active Substance: LERCANIDIPINE
  7. INSULIN GLULISINE [Concomitant]
     Active Substance: INSULIN GLULISINE
  8. FENOFIBRATE. [Concomitant]
     Active Substance: FENOFIBRATE
  9. TELMISARTAN. [Suspect]
     Active Substance: TELMISARTAN
     Indication: ESSENTIAL HYPERTENSION
  10. METOPROLOL. [Concomitant]
     Active Substance: METOPROLOL
  11. INSULINE GLARGINE [Concomitant]
     Active Substance: INSULIN GLARGINE

REACTIONS (2)
  - Hypotension [Recovered/Resolved]
  - Acute kidney injury [Recovered/Resolved]

NARRATIVE: CASE EVENT DATE: 20190523
